FAERS Safety Report 4919245-7 (Version None)
Quarter: 2006Q1

REPORT INFORMATION
  Report Type: 
  Country: None (occurrence: None)
  Receive Date: 20060222
  Receipt Date: 20060214
  Transmission Date: 20060701
  Serious: Yes (Hospitalization)
  Sender: FDA-Public Use
  Company Number: US-ABBOTT-06P-163-0324778-00

PATIENT
  Age: 16 Year
  Sex: Female
  Weight: 63.2 kg

DRUGS (1)
  1. DEPAKOTE ER [Suspect]
     Indication: CONVULSION
     Route: 048
     Dates: start: 20051201, end: 20060126

REACTIONS (4)
  - FLIGHT OF IDEAS [None]
  - HALLUCINATION [None]
  - MENTAL STATUS CHANGES [None]
  - RASH [None]
